FAERS Safety Report 6323153-7 (Version None)
Quarter: 2009Q3

REPORT INFORMATION
  Report Type: 
  Country: None (occurrence: None)
  Receive Date: 20090824
  Receipt Date: 20090416
  Transmission Date: 20100115
  Serious: No
  Sender: FDA-Public Use
  Company Number: US-ABBOTT-09P-163-0563397-00

PATIENT
  Sex: Female

DRUGS (2)
  1. NIASPAN [Suspect]
     Indication: BLOOD CHOLESTEROL INCREASED
     Dates: start: 20080101, end: 20080101
  2. ALLERGY [Concomitant]
     Indication: MULTIPLE ALLERGIES
     Route: 050

REACTIONS (3)
  - ERYTHEMA [None]
  - FEELING HOT [None]
  - RASH [None]
